FAERS Safety Report 5917661-8 (Version None)
Quarter: 2008Q4

REPORT INFORMATION
  Report Type: 
  Country: None (occurrence: None)
  Receive Date: 20081014
  Receipt Date: 20081010
  Transmission Date: 20090506
  Serious: Yes (Hospitalization)
  Sender: FDA-Public Use
  Company Number: TH-BRISTOL-MYERS SQUIBB COMPANY-14356257

PATIENT
  Age: 55 Year
  Sex: Female

DRUGS (15)
  1. ABATACEPT [Suspect]
     Indication: RHEUMATOID ARTHRITIS
     Dosage: 24APR03-22MAR04 750MG/M2 14COURSE 22APR04-21MAR08 750MG/M2 52COURSE 17APR08-CONT 500MG/M2 6COURSE
     Route: 042
     Dates: start: 20030424
  2. OMEPRAZOLE [Concomitant]
     Dates: start: 20030412
  3. FOLIC ACID [Concomitant]
     Dates: start: 20011030
  4. NIFEDIPINE [Concomitant]
     Dates: start: 20030304
  5. ALFACALCIDOL [Concomitant]
     Dates: start: 20040520
  6. PIROXICAM [Concomitant]
     Dates: start: 20040126
  7. CALCIUM CARBONATE [Concomitant]
     Dates: start: 20070323
  8. ACETAMINOPHEN [Concomitant]
     Dosage: TAKEN AS NECESARY
     Dates: start: 20080711
  9. METHOTREXATE [Concomitant]
     Dates: start: 20080417, end: 20080901
  10. SULFASALAZINE [Concomitant]
     Dates: start: 20080806
  11. KENALOG IN ORABASE [Concomitant]
     Dates: start: 20070801
  12. METHYL SALICYLATE [Concomitant]
     Dosage: FORMULATION-OINTMENT.
     Dates: start: 20080128
  13. AMOKSIKLAV [Concomitant]
     Dosage: 1 D.F = 1 TAB. 06OCT08-12OCT08
     Dates: start: 20080905, end: 20080909
  14. BROMHEXINE [Concomitant]
     Dosage: TAKEN AS NECESSARY. 06OCT08-CONT
     Dates: start: 20080905, end: 20080909
  15. LORATADINE [Concomitant]
     Dosage: TAKEN AS NECESSARY.
     Dates: start: 20080905, end: 20080909

REACTIONS (1)
  - BRONCHIECTASIS [None]
